FAERS Safety Report 8159773-7 (Version None)
Quarter: 2012Q1

REPORT INFORMATION
  Report Type: 
  Country: None (occurrence: None)
  Receive Date: 20120223
  Receipt Date: 20120210
  Transmission Date: 20120608
  Serious: Yes (Hospitalization)
  Sender: FDA-Public Use
  Company Number: US-ACTELION-A-NJ2012-60478

PATIENT

DRUGS (14)
  1. EPOPROSTENOL SODIUM [Suspect]
     Indication: PULMONARY ARTERIAL HYPERTENSION
     Dosage: 79 NG/KG, PER MIN
     Route: 041
     Dates: start: 20100823
  2. FLONASE [Concomitant]
  3. POTASSIUM CHLORIDE [Concomitant]
  4. TOPROL-XL [Concomitant]
  5. LORTAB [Concomitant]
  6. PROZAC [Concomitant]
  7. COMBIVENT [Concomitant]
  8. NEXIUM [Concomitant]
  9. CLARITIN [Concomitant]
  10. AMBIEN [Concomitant]
  11. COUMADIN [Concomitant]
  12. OXYGEN [Concomitant]
  13. LIPITOR [Concomitant]
  14. XANAX [Concomitant]

REACTIONS (7)
  - LIPASE INCREASED [None]
  - AMYLASE INCREASED [None]
  - VOMITING [None]
  - ASTHENIA [None]
  - PANCREATITIS ACUTE [None]
  - NAUSEA [None]
  - ABDOMINAL PAIN [None]
